FAERS Safety Report 6827096-1 (Version None)
Quarter: 2010Q3

REPORT INFORMATION
  Report Type: 
  Country: None (occurrence: None)
  Receive Date: 20100709
  Receipt Date: 20100629
  Transmission Date: 20110219
  Serious: Yes (Other)
  Sender: FDA-Public Use
  Company Number: US-GENENTECH-302845

PATIENT
  Sex: Male
  Weight: 52.154 kg

DRUGS (1)
  1. NUTROPIN AQ [Suspect]
     Indication: BODY HEIGHT BELOW NORMAL
     Dosage: 4.2 MG, QD
     Route: 058
     Dates: start: 20080101

REACTIONS (1)
  - HYPERTROPHIC CARDIOMYOPATHY [None]
